FAERS Safety Report 6193855-4 (Version None)
Quarter: 2009Q2

REPORT INFORMATION
  Report Type: 
  Country: None (occurrence: None)
  Receive Date: 20090518
  Receipt Date: 20090507
  Transmission Date: 20091009
  Serious: Yes (Hospitalization)
  Sender: FDA-Public Use
  Company Number: JP-PFIZER INC-2009206499

PATIENT
  Age: 55 Year

DRUGS (10)
  1. ATORVASTATIN CALCIUM [Suspect]
     Indication: HYPERLIPIDAEMIA
     Dosage: 10 MG, 1X/DAY
     Route: 048
     Dates: start: 20070626, end: 20090224
  2. ATORVASTATIN CALCIUM [Suspect]
     Dosage: 10 MG, 1X/DAY
     Route: 048
     Dates: start: 20090324, end: 20090403
  3. ALESION [Concomitant]
     Dosage: UNK
     Dates: start: 20090324, end: 20090403
  4. CARTEOLOL HYDROCHLORIDE [Concomitant]
     Dosage: UNK
     Dates: start: 20010101
  5. PRIVINA [Concomitant]
     Dosage: UNK
  6. CALONAL [Concomitant]
     Dosage: UNK
     Route: 048
  7. SUCRALFATE [Concomitant]
     Dosage: UNK
     Dates: end: 20090403
  8. CYANOCOBALAMIN [Concomitant]
     Dosage: UNK
     Route: 048
     Dates: end: 20090403
  9. ZEPELIN [Concomitant]
     Dosage: UNK
     Dates: start: 20010101
  10. FLUOROMETHOLONE [Concomitant]
     Dosage: UNK
     Dates: start: 20010101

REACTIONS (2)
  - HEPATIC FUNCTION ABNORMAL [None]
  - RHABDOMYOLYSIS [None]
